FAERS Safety Report 15637604 (Version 1)
Quarter: 2018Q4

REPORT INFORMATION
  Report Type: Spontaneous
  Country: US (occurrence: US)
  Receive Date: 20181120
  Receipt Date: 20181120
  Transmission Date: 20190205
  Serious: No
  Sender: FDA-Public Use
  Company Number: US-JNJFOC-20180523937

PATIENT
  Sex: Male

DRUGS (7)
  1. DECADRON [Concomitant]
     Active Substance: DEXAMETHASONE
  2. HYDROCORTISONE. [Concomitant]
     Active Substance: HYDROCORTISONE
  3. IMBRUVICA [Suspect]
     Active Substance: IBRUTINIB
     Indication: PRODUCT USED FOR UNKNOWN INDICATION
     Route: 048
     Dates: start: 20171204
  4. ANDROGEL [Concomitant]
     Active Substance: TESTOSTERONE
  5. CIALIS [Concomitant]
     Active Substance: TADALAFIL
  6. IMBRUVICA [Suspect]
     Active Substance: IBRUTINIB
     Indication: PRODUCT USED FOR UNKNOWN INDICATION
     Route: 048
  7. ALFUZOSIN [Concomitant]
     Active Substance: ALFUZOSIN

REACTIONS (1)
  - Muscle spasms [Unknown]
